FAERS Safety Report 20310589 (Version 1)
Quarter: 2022Q1

REPORT INFORMATION
  Report Type: Spontaneous
  Country: IT (occurrence: IT)
  Receive Date: 20220107
  Receipt Date: 20220107
  Transmission Date: 20220423
  Serious: Yes (Death, Other)
  Sender: FDA-Public Use
  Company Number: IT-AMGEN-ITASP2021208301

PATIENT
  Age: 59 Year
  Sex: Female

DRUGS (2)
  1. XGEVA [Suspect]
     Active Substance: DENOSUMAB
     Indication: Metastases to bone
     Dosage: UNK
     Route: 065
  2. CISPLATIN\PACLITAXEL [Concomitant]
     Active Substance: CISPLATIN\PACLITAXEL

REACTIONS (1)
  - Cervix cancer metastatic [Fatal]
